FAERS Safety Report 4815271-7 (Version None)
Quarter: 2005Q4

REPORT INFORMATION
  Report Type: 
  Country: None (occurrence: None)
  Receive Date: 20051028
  Receipt Date: 20051019
  Transmission Date: 20060501
  Serious: Yes (Other)
  Sender: FDA-Public Use
  Company Number: US-MERCK-0510USA08298

PATIENT
  Sex: Female

DRUGS (1)
  1. VIOXX [Suspect]
     Route: 048
     Dates: start: 20000601, end: 20010201

REACTIONS (4)
  - ANGIOPATHY [None]
  - ENDOCRINE DISORDER [None]
  - LIVER DISORDER [None]
  - MYOCARDIAL INFARCTION [None]
